FAERS Safety Report 7634444-1 (Version None)
Quarter: 2011Q3

REPORT INFORMATION
  Report Type: 
  Country: None (occurrence: None)
  Receive Date: 20110725
  Receipt Date: 20110715
  Transmission Date: 20111222
  Serious: Yes (Other)
  Sender: FDA-Public Use
  Company Number: PHHY2011US16551

PATIENT
  Sex: Female

DRUGS (4)
  1. GILENYA [Suspect]
     Indication: RELAPSING-REMITTING MULTIPLE SCLEROSIS
     Dosage: 0.5 MG, DAILY
     Route: 048
     Dates: start: 20110111, end: 20110302
  2. OXYBUTYNIN [Concomitant]
     Dosage: 5 MG, UNK
     Dates: start: 20101217
  3. DICLOFENAC POTASSIUM [Concomitant]
     Indication: HEADACHE
     Dosage: 50 MG, UNK
     Dates: start: 20110107
  4. DICLOFENAC POTASSIUM [Concomitant]
     Dosage: 50 MG, BID
     Dates: start: 20110114

REACTIONS (4)
  - RASH GENERALISED [None]
  - ABDOMINAL PAIN UPPER [None]
  - SKIN DISCOLOURATION [None]
  - RASH [None]
